FAERS Safety Report 6997689-X (Version None)
Quarter: 2010Q3

REPORT INFORMATION
  Report Type: 
  Country: None (occurrence: None)
  Receive Date: 20100918
  Receipt Date: 20091118
  Transmission Date: 20110219
  Serious: No
  Sender: FDA-Public Use
  Company Number: US-WYE-H12233109

PATIENT
  Sex: Female

DRUGS (8)
  1. PRISTIQ [Suspect]
     Indication: DEPRESSION
     Route: 048
     Dates: start: 20090301, end: 20091113
  2. METFORMIN [Concomitant]
  3. POTASSIUM [Concomitant]
  4. KEFLEX [Concomitant]
  5. ACETYLSALICYLIC ACID [Concomitant]
  6. LASIX [Concomitant]
  7. HYZAAR [Concomitant]
  8. NAPROSYN [Concomitant]

REACTIONS (5)
  - DIARRHOEA [None]
  - DIZZINESS [None]
  - DRUG WITHDRAWAL SYNDROME [None]
  - FATIGUE [None]
  - HYPERHIDROSIS [None]
